FAERS Safety Report 4642924-6 (Version None)
Quarter: 2005Q2

REPORT INFORMATION
  Report Type: 
  Country: None (occurrence: None)
  Receive Date: 20050421
  Receipt Date: 20050409
  Transmission Date: 20051028
  Serious: No
  Sender: FDA-Public Use
  Company Number: 05P-056-0297544-00

PATIENT
  Age: 14 Year
  Sex: Female

DRUGS (9)
  1. NORVIR [Suspect]
     Indication: HIV INFECTION
     Dosage: SEE IMAGE
     Route: 048
     Dates: start: 20041122, end: 20050121
  2. NORVIR [Suspect]
     Indication: HIV INFECTION
     Dosage: SEE IMAGE
     Route: 048
     Dates: start: 20050311
  3. SERETIDE [Suspect]
     Indication: ASTHMA
     Dosage: INHALATION
     Route: 055
     Dates: start: 20000101, end: 20050101
  4. FOSAMPRENAVIR [Suspect]
     Indication: HIV INFECTION
     Dosage: SEE IMAGE
     Route: 048
     Dates: start: 20041122, end: 20050121
  5. FOSAMPRENAVIR [Suspect]
     Indication: HIV INFECTION
     Dosage: SEE IMAGE
     Route: 048
     Dates: start: 20050311
  6. ABACAVIR SULFATE [Concomitant]
  7. TENOFOVIR DISOPROXIL FUMARATE [Concomitant]
  8. BUDESONIDE/FORMOTEROL [Concomitant]
  9. MONTELUKAST [Concomitant]

REACTIONS (12)
  - BLOOD CORTISOL DECREASED [None]
  - CORTISOL FREE URINE DECREASED [None]
  - CUSHING'S SYNDROME [None]
  - HIV INFECTION [None]
  - HYPERCORTICOIDISM [None]
  - HYPERPHAGIA [None]
  - ILL-DEFINED DISORDER [None]
  - INTENTIONAL MISUSE [None]
  - LIPODYSTROPHY ACQUIRED [None]
  - LIPOHYPERTROPHY [None]
  - SKIN STRIAE [None]
  - WEIGHT INCREASED [None]
